FAERS Safety Report 13447617 (Version 5)
Quarter: 2017Q3

REPORT INFORMATION
  Report Type: Spontaneous
  Country: JP (occurrence: JP)
  Receive Date: 20170417
  Receipt Date: 20170810
  Transmission Date: 20171127
  Serious: Yes (Hospitalization, Other)
  Sender: FDA-Public Use
  Company Number: JP-GLAXOSMITHKLINE-JP2017JPN053401

PATIENT
  Age: 76 Year
  Sex: Male

DRUGS (6)
  1. NEODOPASTON [Concomitant]
     Active Substance: CARBIDOPA\LEVODOPA
     Dosage: UNK
     Dates: start: 20170413
  2. DOPASTON [Concomitant]
     Active Substance: LEVODOPA
     Dosage: UNK
     Dates: start: 20170323, end: 20170421
  3. LEPRINTON [Concomitant]
     Dosage: 450 MG, 1D
     Dates: start: 20170314, end: 20170322
  4. FP (JAPAN) [Concomitant]
     Dosage: UNK
     Dates: start: 20150827, end: 20170322
  5. REQUIP [Suspect]
     Active Substance: ROPINIROLE HYDROCHLORIDE
     Indication: PARKINSON^S DISEASE
     Dosage: 4 MG, QD
     Route: 048
     Dates: start: 20161013, end: 20170322
  6. AMANTADINE HYDROCHLORIDE. [Concomitant]
     Active Substance: AMANTADINE HYDROCHLORIDE
     Dosage: UNK
     Dates: start: 20131003, end: 20170322

REACTIONS (4)
  - Pneumonia aspiration [Recovering/Resolving]
  - Dysphagia [Unknown]
  - Pleurisy [Recovering/Resolving]
  - Aspiration [Unknown]

NARRATIVE: CASE EVENT DATE: 20170313
